FAERS Safety Report 16807916 (Version 1)
Quarter: 2019Q3

REPORT INFORMATION
  Report Type: Spontaneous
  Country: GB (occurrence: GB)
  Receive Date: 20190915
  Receipt Date: 20190915
  Transmission Date: 20191005
  Serious: Yes (Other)
  Sender: FDA-Public Use
  Company Number: PHHY2019GB210130

PATIENT
  Sex: Male

DRUGS (3)
  1. DEPIXOL (FLUPENTIXOL DECANOATE) [Suspect]
     Active Substance: FLUPENTIXOL DECANOATE
     Indication: PRODUCT USED FOR UNKNOWN INDICATION
     Dosage: UNK
     Route: 065
  2. OLANZAPINE. [Suspect]
     Active Substance: OLANZAPINE
     Indication: PRODUCT USED FOR UNKNOWN INDICATION
     Dosage: UNK
     Route: 065
  3. EPILIM [Suspect]
     Active Substance: VALPROATE SODIUM
     Indication: PRODUCT USED FOR UNKNOWN INDICATION
     Dosage: UNK
     Route: 065

REACTIONS (10)
  - Eye movement disorder [Unknown]
  - Unevaluable event [Unknown]
  - Confusional state [Unknown]
  - Musculoskeletal stiffness [Unknown]
  - Suicidal ideation [Unknown]
  - Adverse drug reaction [Unknown]
  - Pain [Unknown]
  - Rash generalised [Unknown]
  - Headache [Unknown]
  - Tremor [Unknown]
